FAERS Safety Report 13036116 (Version 1)
Quarter: 2016Q4

REPORT INFORMATION
  Report Type: Spontaneous
  Country: US (occurrence: US)
  Receive Date: 20161216
  Receipt Date: 20161216
  Transmission Date: 20170207
  Serious: Yes (Other)
  Sender: FDA-Public Use
  Company Number: US-JNJFOC-20161209500

PATIENT
  Age: 35 Year
  Sex: Female
  Weight: 106.6 kg

DRUGS (3)
  1. LEVBID [Concomitant]
     Active Substance: HYOSCYAMINE SULFATE
     Route: 065
  2. ASACOL [Concomitant]
     Active Substance: MESALAMINE
     Route: 065
  3. REMICADE [Suspect]
     Active Substance: INFLIXIMAB
     Indication: CROHN^S DISEASE
     Route: 042
     Dates: start: 2007, end: 2013

REACTIONS (3)
  - Exposure during pregnancy [Recovered/Resolved]
  - Urticaria [Unknown]
  - Caesarean section [Unknown]

NARRATIVE: CASE EVENT DATE: 2009
